FAERS Safety Report 20154389 (Version 1)
Quarter: 2021Q4

REPORT INFORMATION
  Report Type: Spontaneous
  Country: CA (occurrence: CA)
  Receive Date: 20211207
  Receipt Date: 20211207
  Transmission Date: 20220303
  Serious: Yes (Other)
  Sender: FDA-Public Use
  Company Number: None

PATIENT
  Age: 59 Year
  Sex: Female

DRUGS (2)
  1. PROTOPIC [Suspect]
     Active Substance: TACROLIMUS
     Indication: Eczema
     Route: 061
  2. PROTOPIC [Suspect]
     Active Substance: TACROLIMUS
     Indication: Eczema eyelids
     Route: 061

REACTIONS (4)
  - Skin weeping [Unknown]
  - Periorbital swelling [Unknown]
  - Erythema [Unknown]
  - Skin erosion [Unknown]
